FAERS Safety Report 16844851 (Version 1)
Quarter: 2019Q4

REPORT INFORMATION
  Report Type: Spontaneous
  Country: US (occurrence: US)
  Receive Date: 20190924
  Receipt Date: 20190924
  Transmission Date: 20200122
  Serious: Yes (Life-Threatening, Hospitalization, Disabling)
  Sender: FDA-Public Use
  Company Number: None

PATIENT
  Age: 64 Year
  Sex: Female
  Weight: 57.15 kg

DRUGS (8)
  1. LUNESTA [Concomitant]
     Active Substance: ESZOPICLONE
  2. TOPAMAX [Concomitant]
     Active Substance: TOPIRAMATE
  3. AIMOVIG [Suspect]
     Active Substance: ERENUMAB-AOOE
     Indication: HEADACHE
     Dosage: ?          QUANTITY:140 INJECTION(S);OTHER FREQUENCY:MONTHLY;?
     Route: 058
     Dates: start: 20180501, end: 20181001
  4. NEURONTIN [Concomitant]
     Active Substance: GABAPENTIN
  5. LEXAPRO [Concomitant]
     Active Substance: ESCITALOPRAM OXALATE
  6. LORSARTAN [Concomitant]
     Active Substance: LOSARTAN
  7. VIT D [Concomitant]
     Active Substance: VITAMIN D NOS
  8. VITAMIN C [Concomitant]
     Active Substance: ASCORBIC ACID

REACTIONS (10)
  - Lip infection [None]
  - Pulmonary oedema [None]
  - Pneumonia [None]
  - Localised infection [None]
  - Post procedural sepsis [None]
  - Peritonsillar abscess [None]
  - Pseudomonas infection [None]
  - Alopecia [None]
  - Urinary tract infection [None]
  - Pulmonary haemorrhage [None]

NARRATIVE: CASE EVENT DATE: 20190205
